FAERS Safety Report 17463101 (Version 2)
Quarter: 2020Q1

REPORT INFORMATION
  Report Type: Spontaneous
  Country: US (occurrence: US)
  Receive Date: 20200226
  Receipt Date: 20200317
  Transmission Date: 20200409
  Serious: No
  Sender: FDA-Public Use
  Company Number: US-ASTRAZENECA-2020SE18582

PATIENT
  Age: 73 Year
  Sex: Male
  Weight: 82.4 kg

DRUGS (2)
  1. BEVESPI AEROSPHERE [Suspect]
     Active Substance: FORMOTEROL FUMARATE\GLYCOPYRROLATE
     Indication: CHRONIC OBSTRUCTIVE PULMONARY DISEASE
     Dosage: 4.8-9 MCG, 2 PUFFS TWICE DAILY
     Route: 055
     Dates: start: 20191201
  2. BEVESPI AEROSPHERE [Suspect]
     Active Substance: FORMOTEROL FUMARATE\GLYCOPYRROLATE
     Indication: CHRONIC OBSTRUCTIVE PULMONARY DISEASE
     Dosage: 4.8-9 MCG, 1 PUFF TWICE DAILY
     Route: 055
     Dates: start: 201911

REACTIONS (3)
  - Intentional product misuse [Unknown]
  - Wrong technique in device usage process [Unknown]
  - Device ineffective [Unknown]

NARRATIVE: CASE EVENT DATE: 201911
